FAERS Safety Report 23906796 (Version 2)
Quarter: 2024Q2

REPORT INFORMATION
  Report Type: Spontaneous
  Country: JP (occurrence: JP)
  Receive Date: 20240528
  Receipt Date: 20240604
  Transmission Date: 20240716
  Serious: Yes (Hospitalization)
  Sender: FDA-Public Use
  Company Number: JP-BAYER-2024A075250

PATIENT
  Age: 71 Year
  Sex: Male

DRUGS (2)
  1. XARELTO [Suspect]
     Active Substance: RIVAROXABAN
     Indication: Cerebrovascular accident prophylaxis
     Dosage: 15 MG/DAY, IN THE MORNING
     Route: 048
     Dates: end: 202404
  2. XARELTO [Suspect]
     Active Substance: RIVAROXABAN
     Dosage: UNK?THERAPY START DATE: 22/MAY/2024
     Route: 048

REACTIONS (1)
  - Hepatic cancer [Recovered/Resolved]
